FAERS Safety Report 7342370-0 (Version None)
Quarter: 2011Q1

REPORT INFORMATION
  Report Type: 
  Country: None (occurrence: None)
  Receive Date: 20110310
  Receipt Date: 20110302
  Transmission Date: 20110831
  Serious: No
  Sender: FDA-Public Use
  Company Number: US-BIOGENIDEC-2011BI008328

PATIENT
  Sex: Male

DRUGS (2)
  1. TYSABRI [Suspect]
     Indication: MULTIPLE SCLEROSIS
     Route: 042
     Dates: start: 20081017
  2. TYSABRI [Suspect]
     Route: 042
     Dates: start: 20050101, end: 20050201

REACTIONS (5)
  - MUSCLE SPASMS [None]
  - SINUSITIS [None]
  - FALL [None]
  - GAIT DISTURBANCE [None]
  - ASTHENIA [None]
